FAERS Safety Report 23284777 (Version 2)
Quarter: 2023Q4

REPORT INFORMATION
  Report Type: Spontaneous
  Country: DE (occurrence: DE)
  Receive Date: 20231211
  Receipt Date: 20231228
  Transmission Date: 20240110
  Serious: Yes (Other)
  Sender: FDA-Public Use
  Company Number: DE-EMBRYOTOX-202300315

PATIENT
  Sex: Female
  Weight: 3.69 kg

DRUGS (2)
  1. CLINDAMYCIN [Suspect]
     Active Substance: CLINDAMYCIN
     Indication: Sinusitis
     Dosage: (TRIMESTER: 3RD)
     Route: 064
  2. LEVOTHYROXINE SODIUM [Concomitant]
     Active Substance: LEVOTHYROXINE SODIUM
     Indication: Hypothyroidism
     Dosage: 75 MICROGRAM, QD
     Route: 064
     Dates: start: 20161026, end: 20170708

REACTIONS (2)
  - Tooth hypoplasia [Unknown]
  - Foetal exposure during pregnancy [Unknown]
